FAERS Safety Report 10697391 (Version 1)
Quarter: 2015Q1

REPORT INFORMATION
  Report Type: Spontaneous
  Country: US (occurrence: None)
  Receive Date: 20150107
  Receipt Date: 20150107
  Transmission Date: 20150721
  Serious: Yes (Life-Threatening, Hospitalization)
  Sender: FDA-Public Use
  Company Number: None

PATIENT
  Age: 63 Year
  Sex: Female
  Weight: 77.11 kg

DRUGS (1)
  1. CLOPIDOGREL [Suspect]
     Active Substance: CLOPIDOGREL BISULFATE
     Indication: MYOCARDIAL INFARCTION
     Dosage: 1 DAILY
     Route: 048
     Dates: start: 20140320, end: 20141127

REACTIONS (5)
  - Oesophageal rupture [None]
  - Epistaxis [None]
  - Haematemesis [None]
  - Haemorrhage [None]
  - Oesophageal obstruction [None]

NARRATIVE: CASE EVENT DATE: 20141127
